FAERS Safety Report 24338603 (Version 1)
Quarter: 2024Q3

REPORT INFORMATION
  Report Type: Spontaneous
  Country: CN (occurrence: CN)
  Receive Date: 20240919
  Receipt Date: 20240919
  Transmission Date: 20241017
  Serious: Yes (Other)
  Sender: NOVARTIS
  Company Number: CN-002147023-NVSC2024CN186231

PATIENT
  Age: 33 Year
  Sex: Male
  Weight: 65 kg

DRUGS (1)
  1. SECUKINUMAB [Suspect]
     Active Substance: SECUKINUMAB
     Indication: Ankylosing spondylitis
     Dosage: 0.15 G, QW
     Route: 058
     Dates: start: 20240717, end: 20240814

REACTIONS (1)
  - Blood uric acid increased [Not Recovered/Not Resolved]

NARRATIVE: CASE EVENT DATE: 20240814
